FAERS Safety Report 24151701 (Version 2)
Quarter: 2024Q3

REPORT INFORMATION
  Report Type: Spontaneous
  Country: CA (occurrence: CA)
  Receive Date: 20240730
  Receipt Date: 20240924
  Transmission Date: 20241016
  Serious: Yes (Other)
  Sender: CELLTRION
  Company Number: CA-PFIZER INC-202300235956

PATIENT

DRUGS (15)
  1. INFLECTRA [Suspect]
     Active Substance: INFLIXIMAB-DYYB
     Indication: Crohn^s disease
     Dosage: 5 MG/KG, INDUCTION WEEKS 0, 2, 6 MAINTENANCE Q 8 WEEKS
     Route: 042
     Dates: start: 20230509, end: 20230802
  2. INFLECTRA [Suspect]
     Active Substance: INFLIXIMAB-DYYB
     Dosage: 5 MG/KG, INDUCTION WEEKS 0, 2, 6 MAINTENANCE Q 8 WEEKS
     Route: 042
     Dates: start: 20230802
  3. INFLECTRA [Suspect]
     Active Substance: INFLIXIMAB-DYYB
     Dosage: 550 MG, (10 MG/KG), EVERY 6 WEEK
     Route: 042
     Dates: start: 20230914, end: 20240410
  4. INFLECTRA [Suspect]
     Active Substance: INFLIXIMAB-DYYB
     Dosage: 560 MG, 6 WEEKS
     Route: 042
     Dates: start: 20231026
  5. INFLECTRA [Suspect]
     Active Substance: INFLIXIMAB-DYYB
     Dosage: 10 MG/KG, EVERY 6 WEEKS (550 MG, AFTER 6 WEEKS AND 1 DAY)
     Route: 042
     Dates: start: 20231208
  6. INFLECTRA [Suspect]
     Active Substance: INFLIXIMAB-DYYB
     Dosage: 10 MG/KG, EVERY 6 WEEK
     Route: 042
     Dates: start: 20240410
  7. INFLECTRA [Suspect]
     Active Substance: INFLIXIMAB-DYYB
     Dosage: 10 MG/KG, EVERY 4 WEEK (6 WEEKS AND 2 DAYS AFTER LAST TREATMENT (WHICH TOOK PLACE ON 10APR2024)
     Route: 042
     Dates: start: 20240524
  8. INFLECTRA [Suspect]
     Active Substance: INFLIXIMAB-DYYB
     Dosage: 550 MG, EVERY 4 WEEK
     Route: 042
     Dates: start: 20240621
  9. INFLECTRA [Suspect]
     Active Substance: INFLIXIMAB-DYYB
     Dosage: 500 MG, EVERY 4 WEEK
     Route: 042
     Dates: start: 20240719
  10. INFLECTRA [Suspect]
     Active Substance: INFLIXIMAB-DYYB
     Dosage: 10 MG/KG, EVERY 4 WEEK
     Route: 042
     Dates: start: 20240816
  11. INFLECTRA [Suspect]
     Active Substance: INFLIXIMAB-DYYB
     Dosage: 500 MG, 4 WEEKS (10 MG/KG, EVERY 4 WEEK)
     Route: 042
     Dates: start: 20240913
  12. AZATHIOPRINE [Concomitant]
     Active Substance: AZATHIOPRINE
     Dosage: 1 DF
  13. DIPHENHYDRAMINE [Concomitant]
     Active Substance: DIPHENHYDRAMINE
     Indication: Premedication
     Dosage: 50 MG
     Route: 048
     Dates: start: 20231026, end: 20231026
  14. HYDROCORTISONE [Concomitant]
     Active Substance: HYDROCORTISONE\HYDROCORTISONE ACETATE
     Indication: Premedication
     Dosage: 100 MG
     Route: 042
     Dates: start: 20231026, end: 20231026
  15. IMURAN [Concomitant]
     Active Substance: AZATHIOPRINE
     Dosage: 1 DF

REACTIONS (17)
  - Hepatic cirrhosis [Recovering/Resolving]
  - Ascites [Not Recovered/Not Resolved]
  - Drug level decreased [Unknown]
  - Drug level below therapeutic [Unknown]
  - Condition aggravated [Recovered/Resolved]
  - Rash pruritic [Not Recovered/Not Resolved]
  - Pruritus [Not Recovered/Not Resolved]
  - Cough [Not Recovered/Not Resolved]
  - Fatigue [Not Recovered/Not Resolved]
  - Dizziness [Not Recovered/Not Resolved]
  - Anaemia [Recovering/Resolving]
  - Muscle spasms [Recovered/Resolved]
  - Dehydration [Recovered/Resolved]
  - Off label use [Unknown]
  - Off label use [Unknown]
  - Intentional product use issue [Unknown]
  - Inappropriate schedule of product administration [Unknown]

NARRATIVE: CASE EVENT DATE: 20230101
